FAERS Safety Report 7606744-2 (Version None)
Quarter: 2011Q3

REPORT INFORMATION
  Report Type: 
  Country: None (occurrence: None)
  Receive Date: 20110713
  Receipt Date: 20110712
  Transmission Date: 20111222
  Serious: Yes (Hospitalization)
  Sender: FDA-Public Use
  Company Number: US-MERCK-1105USA01623

PATIENT
  Age: 45 Year
  Sex: Male

DRUGS (6)
  1. SINGULAIR [Suspect]
     Indication: ASTHMA
     Route: 048
     Dates: start: 20110302, end: 20110503
  2. SINGULAIR [Suspect]
     Route: 048
     Dates: start: 20110504
  3. BALANCE [Concomitant]
     Route: 065
  4. SYSTANE [Concomitant]
     Route: 065
  5. SINGULAIR [Suspect]
     Route: 048
     Dates: start: 20110504
  6. SINGULAIR [Suspect]
     Indication: RHINORRHOEA
     Route: 048
     Dates: start: 20110302, end: 20110503

REACTIONS (6)
  - ADVERSE EVENT [None]
  - VOMITING [None]
  - SEXUALLY TRANSMITTED DISEASE [None]
  - HAEMOPTYSIS [None]
  - BACK PAIN [None]
  - ABDOMINAL PAIN UPPER [None]
